FAERS Safety Report 8614459-7 (Version None)
Quarter: 2012Q3

REPORT INFORMATION
  Report Type: 
  Country: None (occurrence: None)
  Receive Date: 20120809
  Receipt Date: 20120731
  Transmission Date: 20120928
  Serious: Yes (Disabling)
  Sender: FDA-Public Use
  Company Number: AUR-APL-2012-01265

PATIENT
  Age: 72 Year
  Sex: Female
  Weight: 82.55 kg

DRUGS (15)
  1. ALENDRONATE SODIUM [Concomitant]
  2. BENDROFLUMETHIAZIDE (BENDROFLUMETHIAZIDE) [Concomitant]
  3. CALCIUM CARBONATE [Concomitant]
  4. CLENIL MODULITE (VENTIDE /01805401/) [Concomitant]
  5. METHOTREXATE [Concomitant]
  6. BECLOMETHASONE DIPROPIONATE [Concomitant]
  7. PREDNISOLONE [Concomitant]
  8. VENTOLIN [Concomitant]
  9. DOXYCYCLINE [Concomitant]
  10. HYPROMELLOSE (HYPROMELLOSE) [Concomitant]
  11. VALSARTAN [Concomitant]
  12. DICLOFENAC SODIUM [Concomitant]
  13. FOLIC ACID [Concomitant]
  14. SIMVASTATIN [Suspect]
     Indication: PRODUCT USED FOR UNKNOWN INDICATION
     Dates: start: 20111027
  15. LANSOPRAZOLE [Concomitant]

REACTIONS (1)
  - PAIN [None]
